FAERS Safety Report 25217322 (Version 2)
Quarter: 2025Q4

REPORT INFORMATION
  Report Type: Spontaneous
  Country: US (occurrence: US)
  Receive Date: 20250420
  Receipt Date: 20251221
  Transmission Date: 20260117
  Serious: No
  Sender: SANOFI AVENTIS
  Company Number: US-SA-2025SA109831

PATIENT
  Age: 83 Year
  Sex: Female

DRUGS (1)
  1. DUPIXENT [Suspect]
     Active Substance: DUPILUMAB
     Indication: Dermatitis atopic
     Dosage: 300 MG, QOW
     Route: 058

REACTIONS (10)
  - Dry skin [Unknown]
  - Sleep disorder [Unknown]
  - Skin lesion [Unknown]
  - Vision blurred [Unknown]
  - Pruritus [Unknown]
  - Dry eye [Unknown]
  - Rash [Unknown]
  - Injection site pain [Unknown]
  - Eczema [Unknown]
  - Drug ineffective [Unknown]
